FAERS Safety Report 5455574-9 (Version None)
Quarter: 2007Q3

REPORT INFORMATION
  Report Type: 
  Country: None (occurrence: None)
  Receive Date: 20070918
  Receipt Date: 20070702
  Transmission Date: 20080115
  Serious: Yes (Other)
  Sender: FDA-Public Use
  Company Number: US-ASTRAZENECA-2006UW21741

PATIENT
  Age: 598 Month
  Sex: Female
  Weight: 86.4 kg

DRUGS (2)
  1. SEROQUEL [Suspect]
     Indication: BIPOLAR DISORDER
     Route: 048
  2. MIRTAZAPINE [Concomitant]
     Dates: start: 20060101

REACTIONS (2)
  - BLOOD CHOLESTEROL INCREASED [None]
  - PANCREATITIS [None]
